FAERS Safety Report 11765657 (Version 1)
Quarter: 2015Q4

REPORT INFORMATION
  Report Type: Spontaneous
  Country: US (occurrence: US)
  Receive Date: 20151120
  Receipt Date: 20151120
  Transmission Date: 20160304
  Serious: No
  Sender: FDA-Public Use
  Company Number: US-ELI_LILLY_AND_COMPANY-US201406003677

PATIENT
  Sex: Female
  Weight: 55.33 kg

DRUGS (6)
  1. SIMVASTATIN. [Concomitant]
     Active Substance: SIMVASTATIN
  2. VITAMIN D3 [Concomitant]
     Active Substance: CHOLECALCIFEROL
  3. METOPROLOL [Concomitant]
     Active Substance: METOPROLOL
  4. LISINOPRIL. [Concomitant]
     Active Substance: LISINOPRIL
  5. NORCO [Concomitant]
     Active Substance: ACETAMINOPHEN\HYDROCODONE BITARTRATE
  6. FORTEO [Suspect]
     Active Substance: TERIPARATIDE
     Indication: OSTEOPOROSIS
     Dosage: 20 UG, UNK
     Route: 065
     Dates: start: 20140305, end: 20140606

REACTIONS (1)
  - Nephrolithiasis [Unknown]
